FAERS Safety Report 13652167 (Version 3)
Quarter: 2018Q1

REPORT INFORMATION
  Report Type: Spontaneous
  Country: CA (occurrence: CA)
  Receive Date: 20170614
  Receipt Date: 20180228
  Transmission Date: 20180508
  Serious: Yes (Other)
  Sender: FDA-Public Use
  Company Number: CA-PFIZER INC-2017231448

PATIENT
  Age: 30 Year
  Sex: Male

DRUGS (4)
  1. SANDOSTATIN LAR DEPOT [Concomitant]
     Active Substance: OCTREOTIDE ACETATE
     Dosage: 30 MG (EVERY 4 WEEKS IN THE BUTTOCKS)
     Route: 030
  2. SOMAVERT [Suspect]
     Active Substance: PEGVISOMANT
     Indication: ACROMEGALY
     Dosage: 10 MG, DAILY
     Route: 058
     Dates: start: 20170606
  3. SYNTHROID [Concomitant]
     Active Substance: LEVOTHYROXINE SODIUM
     Dosage: 0.075 MG, DAILY
     Route: 048
  4. CORTEF [Concomitant]
     Active Substance: HYDROCORTISONE
     Dosage: 20 MG AT BREAKFAST, 20 MG AT SUPPER
     Route: 048

REACTIONS (4)
  - Blindness [Not Recovered/Not Resolved]
  - Intentional product misuse [Unknown]
  - Product use issue [Unknown]
  - Meningitis [Unknown]
